FAERS Safety Report 4594441-X (Version None)
Quarter: 2005Q1

REPORT INFORMATION
  Report Type: 
  Country: None (occurrence: None)
  Receive Date: 20050301
  Receipt Date: 20040211
  Transmission Date: 20050727
  Serious: Yes (Life-Threatening, Hospitalization, Disabling)
  Sender: FDA-Public Use
  Company Number: US-GLAXOSMITHKLINE-A0498037A

PATIENT
  Age: 51 Year
  Sex: Male

DRUGS (4)
  1. VALTREX [Suspect]
     Dosage: 2G TWICE PER DAY
     Route: 048
     Dates: start: 20040130, end: 20040130
  2. ZOCOR [Concomitant]
  3. SYNTHROID [Concomitant]
  4. ULTRAM [Concomitant]

REACTIONS (1)
  - CONVULSION [None]
